FAERS Safety Report 5454943-0 (Version None)
Quarter: 2007Q3

REPORT INFORMATION
  Report Type: 
  Country: None (occurrence: None)
  Receive Date: 20070917
  Receipt Date: 20070905
  Transmission Date: 20080115
  Serious: Yes (Other)
  Sender: FDA-Public Use
  Company Number: GB-PFIZER INC-2007074364

PATIENT
  Age: 41 Year
  Sex: Female

DRUGS (3)
  1. CHAMPIX [Suspect]
     Route: 048
     Dates: start: 20070710, end: 20070803
  2. LEVOTHYROXINE SODIUM [Interacting]
     Indication: HYPOTHYROIDISM
     Route: 048
  3. SIMVASTATIN [Concomitant]
     Route: 048

REACTIONS (7)
  - ABDOMINAL DISTENSION [None]
  - AGGRESSION [None]
  - DRUG INTERACTION [None]
  - HEADACHE [None]
  - HOT FLUSH [None]
  - IRRITABILITY [None]
  - NAUSEA [None]
